FAERS Safety Report 23930950 (Version 1)
Quarter: 2024Q2

REPORT INFORMATION
  Report Type: Report from Study
  Country: SA (occurrence: SA)
  Receive Date: 20240603
  Receipt Date: 20240603
  Transmission Date: 20240716
  Serious: Yes (Other)
  Sender: FDA-Public Use
  Company Number: SA-SANDOZ-SDZ2024SA053850

PATIENT
  Sex: Male

DRUGS (1)
  1. OMNITROPE [Suspect]
     Active Substance: SOMATROPIN
     Indication: Growth hormone deficiency
     Dosage: NA/DAILY, PREFILLED STERILE SOLUTION
     Route: 065
     Dates: start: 20240130

REACTIONS (2)
  - Micropenis [Not Recovered/Not Resolved]
  - Obesity [Not Recovered/Not Resolved]
